FAERS Safety Report 6625896-4 (Version None)
Quarter: 2010Q1

REPORT INFORMATION
  Report Type: 
  Country: None (occurrence: None)
  Receive Date: 20100310
  Receipt Date: 20100301
  Transmission Date: 20100710
  Serious: Yes (Disabling)
  Sender: FDA-Public Use
  Company Number: GXKR2010BR02183

PATIENT
  Sex: Male
  Weight: 89 kg

DRUGS (1)
  1. QIFTRIM F (NGX) [Suspect]
     Indication: URINARY TRACT INFECTION
     Dosage: 1 DF, BID
     Route: 048
     Dates: start: 20100219

REACTIONS (2)
  - FACIAL PALSY [None]
  - HEADACHE [None]
